FAERS Safety Report 7047587-0 (Version None)
Quarter: 2010Q4

REPORT INFORMATION
  Report Type: 
  Country: None (occurrence: None)
  Receive Date: 20101015
  Receipt Date: 20101006
  Transmission Date: 20110411
  Serious: Yes (Hospitalization)
  Sender: FDA-Public Use
  Company Number: FR-ABBOTT-10P-056-0676388-00

PATIENT
  Age: 43 Year
  Sex: Male

DRUGS (10)
  1. DEPAKOTE [Suspect]
     Indication: PRODUCT USED FOR UNKNOWN INDICATION
     Dosage: 2500 MG DAILY
     Route: 048
  2. SOLIAN [Suspect]
     Indication: PSYCHOTIC DISORDER
     Dosage: 100MG/ML; 12 ML DAILY
     Route: 048
     Dates: end: 20100701
  3. LEPTICUR [Suspect]
     Indication: PRODUCT USED FOR UNKNOWN INDICATION
     Dosage: 20 MG DAILY
     Route: 048
  4. LOXAPAC [Suspect]
     Indication: PSYCHOTIC DISORDER
     Dosage: 150 UNITS DAILY
     Route: 048
  5. CLOPIXOL [Suspect]
     Indication: PSYCHOTIC DISORDER
     Dosage: 150 UNITS DAILY
     Route: 048
  6. ATARAX [Suspect]
     Indication: PRODUCT USED FOR UNKNOWN INDICATION
     Dosage: 200 MG DAILY
     Route: 048
  7. LORMETAZEPAM [Suspect]
     Indication: PRODUCT USED FOR UNKNOWN INDICATION
     Dosage: 2 MG DAILY
     Route: 048
  8. RIVOTRIL [Suspect]
     Indication: PRODUCT USED FOR UNKNOWN INDICATION
     Dosage: 110 UNITS DAILY
     Route: 048
  9. FORLAX [Concomitant]
     Indication: PRODUCT USED FOR UNKNOWN INDICATION
  10. LEVOTHYROXINE SODIUM [Concomitant]
     Indication: PRODUCT USED FOR UNKNOWN INDICATION

REACTIONS (1)
  - HYPOGLYCAEMIA [None]
